FAERS Safety Report 7913833-1 (Version None)
Quarter: 2011Q4

REPORT INFORMATION
  Report Type: 
  Country: None (occurrence: None)
  Receive Date: 20111115
  Receipt Date: 20111101
  Transmission Date: 20120403
  Serious: Yes (Life-Threatening, Hospitalization)
  Sender: FDA-Public Use
  Company Number: DE-UCBSA-033008

PATIENT
  Age: 78 Year
  Sex: Female
  Weight: 51 kg

DRUGS (16)
  1. PREDNISOLONE [Concomitant]
     Dates: start: 20110312
  2. METHOTREXATE [Concomitant]
     Dates: start: 20040422, end: 20101008
  3. METHOTREXATE [Concomitant]
     Dosage: 20 MG QS (SUFFICIENT QUANTITY)
     Dates: start: 20101009, end: 20110323
  4. DEKRISTOL [Concomitant]
     Indication: OSTEOPOROSIS
     Dosage: QS
     Dates: start: 20100730
  5. FOLIC ACID [Concomitant]
     Indication: RHEUMATOID ARTHRITIS
     Dosage: 5 MG QS (SUFFICIENT QUANTITY)
     Dates: start: 20040422, end: 20110323
  6. METHOTREXATE [Concomitant]
     Indication: RHEUMATOID ARTHRITIS
     Dosage: QS (SUFFICIENT QUANTITY)
     Dates: start: 20040104, end: 20040421
  7. PREDNISOLONE [Concomitant]
     Indication: RHEUMATOID ARTHRITIS
     Dates: start: 20040422, end: 20110210
  8. PREDNISOLONE [Concomitant]
     Dates: start: 20110305, end: 20110311
  9. PREDNISOLONE [Concomitant]
     Dates: start: 20110219, end: 20110225
  10. PREDNISOLONE [Concomitant]
     Dates: start: 20110226, end: 20110304
  11. ALENDRONIC ACID [Concomitant]
     Indication: OSTEOPOROSIS
     Dosage: 70 MG QS
     Dates: start: 20100730
  12. ENOXAPARIN [Concomitant]
     Indication: THROMBOSIS PROPHYLAXIS
     Dates: start: 20110323
  13. CERTOLIZUMAB PEGOL [Suspect]
     Indication: RHEUMATOID ARTHRITIS
     Route: 058
     Dates: start: 20100924
  14. CELEBREX [Concomitant]
     Indication: RHEUMATOID ARTHRITIS
     Dates: start: 20110218
  15. CERTOLIZUMAB PEGOL [Suspect]
     Route: 058
     Dates: start: 20100827, end: 20100924
  16. PREDNISOLONE [Concomitant]
     Dates: start: 20110211, end: 20110218

REACTIONS (19)
  - HYPOCALCAEMIA [None]
  - OESOPHAGEAL CANDIDIASIS [None]
  - SUPRAVENTRICULAR EXTRASYSTOLES [None]
  - HYPONATRAEMIA [None]
  - CULTURE URINE POSITIVE [None]
  - THYROID NEOPLASM [None]
  - TACHYARRHYTHMIA [None]
  - CORYNEBACTERIUM INFECTION [None]
  - PERICARDIAL EFFUSION [None]
  - ESCHERICHIA INFECTION [None]
  - HELICOBACTER GASTRITIS [None]
  - AORTIC ARTERIOSCLEROSIS [None]
  - BLOOD CULTURE POSITIVE [None]
  - PULMONARY TUBERCULOSIS [None]
  - HYPOKALAEMIA [None]
  - RHEUMATOID ARTHRITIS [None]
  - HAEMANGIOMA OF LIVER [None]
  - RENAL CYST [None]
  - ATRIAL FIBRILLATION [None]
